FAERS Safety Report 5512780-2 (Version None)
Quarter: 2007Q4

REPORT INFORMATION
  Report Type: 
  Country: None (occurrence: None)
  Receive Date: 20071108
  Receipt Date: 20071025
  Transmission Date: 20080405
  Serious: Yes (Hospitalization)
  Sender: FDA-Public Use
  Company Number: 163246ISR

PATIENT
  Age: 42 Year
  Sex: Female

DRUGS (5)
  1. AMOXICILLIN [Suspect]
     Indication: RESPIRATORY TRACT INFECTION
     Dosage: (1000 MG) ORAL
     Route: 048
     Dates: start: 20071016, end: 20071016
  2. FLUTICASONE PROPIONATE [Concomitant]
  3. NOMEGESTROL ACETATE [Concomitant]
  4. ESCITALOPRAM OXALATE [Concomitant]
  5. BETAMETHASONE [Concomitant]

REACTIONS (2)
  - ANGIOEDEMA [None]
  - CEREBROVASCULAR ACCIDENT [None]
